FAERS Safety Report 5730352-1 (Version None)
Quarter: 2008Q2

REPORT INFORMATION
  Report Type: 
  Country: None (occurrence: None)
  Receive Date: 20080430
  Receipt Date: 20071217
  Transmission Date: 20081010
  Serious: No
  Sender: FDA-Public Use
  Company Number: 2007-US-000283

PATIENT
  Age: 4 Year
  Sex: Male

DRUGS (2)
  1. INCRELEX [Suspect]
     Dosage: 5 UT, BID, SUBCUTANEOUS ; 11 UNITS, BID, SUBCUTANEOUS
     Route: 058
     Dates: start: 20071126, end: 20071201
  2. INCRELEX [Suspect]
     Dosage: 5 UT, BID, SUBCUTANEOUS ; 11 UNITS, BID, SUBCUTANEOUS
     Route: 058
     Dates: start: 20071202, end: 20071216

REACTIONS (2)
  - AGGRESSION [None]
  - PERSONALITY DISORDER [None]
